FAERS Safety Report 12461788 (Version 1)
Quarter: 2016Q2

REPORT INFORMATION
  Report Type: Report from Study
  Country: US (occurrence: US)
  Receive Date: 20160613
  Receipt Date: 20160613
  Transmission Date: 20160815
  Serious: Yes (Hospitalization)
  Sender: FDA-Public Use
  Company Number: US-ACTELION-A-NJ2016-137206

PATIENT
  Age: 79 Year
  Sex: Male

DRUGS (18)
  1. DIGOX [Concomitant]
     Active Substance: DIGOXIN
  2. METOLAZONE. [Concomitant]
     Active Substance: METOLAZONE
  3. METRONIDAZOLE. [Concomitant]
     Active Substance: METRONIDAZOLE
  4. EPLERENONE. [Concomitant]
     Active Substance: EPLERENONE
  5. MINOCYCLINE [Concomitant]
     Active Substance: MINOCYCLINE\MINOCYCLINE HYDROCHLORIDE
  6. SPIRONOLACTONE. [Concomitant]
     Active Substance: SPIRONOLACTONE
  7. OPSUMIT [Suspect]
     Active Substance: MACITENTAN
     Indication: PULMONARY ARTERIAL HYPERTENSION
     Dosage: 10 MG, UNK
     Route: 048
     Dates: start: 201604
  8. CEPHALEXIN. [Concomitant]
     Active Substance: CEPHALEXIN
  9. FUROSEMIDE. [Concomitant]
     Active Substance: FUROSEMIDE
  10. SYNTHROID [Concomitant]
     Active Substance: LEVOTHYROXINE SODIUM
  11. LANOXIN [Concomitant]
     Active Substance: DIGOXIN
  12. COUMADIN [Concomitant]
     Active Substance: WARFARIN SODIUM
  13. LIDOCAINE. [Concomitant]
     Active Substance: LIDOCAINE
  14. POTASSIUM CHLORIDE. [Concomitant]
     Active Substance: POTASSIUM CHLORIDE
  15. POTASSIUM [Concomitant]
     Active Substance: POTASSIUM
  16. AMOXICILLIN. [Concomitant]
     Active Substance: AMOXICILLIN
  17. CIPROFLOXACIN. [Concomitant]
     Active Substance: CIPROFLOXACIN
  18. HYDROXY [Concomitant]

REACTIONS (3)
  - Cellulitis [Not Recovered/Not Resolved]
  - Weight increased [Not Recovered/Not Resolved]
  - Oedema peripheral [Not Recovered/Not Resolved]

NARRATIVE: CASE EVENT DATE: 20160520
